FAERS Safety Report 20126823 (Version 3)
Quarter: 2022Q1

REPORT INFORMATION
  Report Type: Spontaneous
  Country: JP (occurrence: JP)
  Receive Date: 20211129
  Receipt Date: 20220124
  Transmission Date: 20220424
  Serious: Yes (Hospitalization, Other)
  Sender: FDA-Public Use
  Company Number: JP-ONO-2021JP029718

PATIENT
  Age: 39 Year
  Sex: Female

DRUGS (1)
  1. OPDIVO [Suspect]
     Active Substance: NIVOLUMAB
     Indication: Peritoneal mesothelioma malignant
     Dosage: UNK
     Route: 041

REACTIONS (4)
  - Drug-induced liver injury [Unknown]
  - Pancreatitis [Unknown]
  - Jaundice cholestatic [Unknown]
  - Intentional product use issue [Unknown]
